FAERS Safety Report 21766867 (Version 1)
Quarter: 2022Q4

REPORT INFORMATION
  Report Type: Spontaneous
  Country: GR (occurrence: GR)
  Receive Date: 20221222
  Receipt Date: 20221222
  Transmission Date: 20230113
  Serious: Yes (Other)
  Sender: FDA-Public Use
  Company Number: GR-MYLANLABS-2022M1138037

PATIENT
  Age: 68 Year
  Sex: Female

DRUGS (8)
  1. CLARITHROMYCIN [Suspect]
     Active Substance: CLARITHROMYCIN
     Indication: Product used for unknown indication
     Dosage: UNK, KLARICID 500, WHICH CUT IT IN HALF, FOR 4 DAYS
     Route: 065
  2. CLARITHROMYCIN [Suspect]
     Active Substance: CLARITHROMYCIN
     Dosage: UNK
     Route: 065
  3. VITAMIN E [Concomitant]
     Active Substance: .ALPHA.-TOCOPHEROL
     Dosage: UNK
     Route: 065
  4. IVY EXTRACT [Concomitant]
     Active Substance: IVY EXTRACT
     Dosage: UNK
     Route: 065
  5. SACCHAROMYCES CEREVISIAE [Concomitant]
     Active Substance: SACCHAROMYCES CEREVISIAE
     Dosage: UNK
     Route: 065
  6. PEPTAN [Concomitant]
     Dosage: UNK
     Route: 065
  7. VIBRAMYCIN [Concomitant]
     Active Substance: DOXYCYCLINE
     Dosage: UNK
     Route: 065
  8. VAXIGRIP [Concomitant]
     Active Substance: INFLUENZA VIRUS VACCINE
     Dosage: UNK
     Route: 065

REACTIONS (7)
  - Intracranial pressure increased [Unknown]
  - Dysgeusia [Unknown]
  - Headache [Unknown]
  - Blood pressure increased [Unknown]
  - Therapeutic product effect incomplete [Unknown]
  - Dizziness [Unknown]
  - Balance disorder [Unknown]
